FAERS Safety Report 18894552 (Version 1)
Quarter: 2021Q1

REPORT INFORMATION
  Report Type: Spontaneous
  Country: BR (occurrence: BR)
  Receive Date: 20210215
  Receipt Date: 20210215
  Transmission Date: 20210420
  Serious: Yes (Death, Other)
  Sender: FDA-Public Use
  Company Number: BR-B.I. PHARMACEUTICALS,INC./RIDGEFIELD-2021-BI-083273

PATIENT

DRUGS (2)
  1. OFEV [Suspect]
     Active Substance: NINTEDANIB
     Indication: INTERSTITIAL LUNG DISEASE
  2. OFEV [Suspect]
     Active Substance: NINTEDANIB
     Indication: HYPERSENSITIVITY PNEUMONITIS
     Dates: start: 2019

REACTIONS (2)
  - Off label use [Unknown]
  - Death [Fatal]
